FAERS Safety Report 4585269-5 (Version None)
Quarter: 2005Q1

REPORT INFORMATION
  Report Type: 
  Country: None (occurrence: None)
  Receive Date: 20050214
  Receipt Date: 20050131
  Transmission Date: 20050727
  Serious: Yes (Life-Threatening, Other)
  Sender: FDA-Public Use
  Company Number: 2005016418

PATIENT
  Sex: Male

DRUGS (4)
  1. BEXTRA [Suspect]
     Indication: LIMB INJURY
     Dosage: 40 MG (40 MG, 1 IN 1 D)
     Dates: start: 20040330, end: 20050105
  2. SERTRALINE HCL [Concomitant]
  3. HYDROCHLOROTIAZIDE (HYDROCHLOROTHIAZIDE) [Concomitant]
  4. LEVOTHYROXINE SODIUM [Concomitant]

REACTIONS (2)
  - MYOCARDIAL INFARCTION [None]
  - THROMBOSIS [None]
